FAERS Safety Report 13542401 (Version 1)
Quarter: 2017Q2

REPORT INFORMATION
  Report Type: Spontaneous
  Country: US (occurrence: US)
  Receive Date: 20170512
  Receipt Date: 20170512
  Transmission Date: 20170830
  Serious: Yes (Other)
  Sender: FDA-Public Use
  Company Number: US-ROCHE-704475

PATIENT
  Sex: Male
  Weight: 74.8 kg

DRUGS (7)
  1. GABAPENTIN. [Concomitant]
     Active Substance: GABAPENTIN
     Route: 065
  2. STOOL SOFTENER NOS [Concomitant]
     Route: 065
  3. OXALIPLATIN. [Suspect]
     Active Substance: OXALIPLATIN
     Indication: COLORECTAL CANCER METASTATIC
     Dosage: FORM: INFUSION
     Route: 065
  4. OXYCODONE [Concomitant]
     Active Substance: OXYCODONE
     Route: 065
  5. LISINOPRIL. [Concomitant]
     Active Substance: LISINOPRIL
     Route: 065
  6. AVASTIN [Suspect]
     Active Substance: BEVACIZUMAB
     Indication: COLORECTAL CANCER METASTATIC
     Route: 042
  7. XELODA [Suspect]
     Active Substance: CAPECITABINE
     Indication: COLORECTAL CANCER METASTATIC
     Dosage: FREQUENCY: QD, (DOSE: 1500 MG QAM AND 1000 MG QPM TWO WEEKS ON/ONE WEEK OFF)
     Route: 048

REACTIONS (3)
  - Chills [Unknown]
  - Tremor [Unknown]
  - Dyspnoea [Unknown]
